FAERS Safety Report 5958556-3 (Version None)
Quarter: 2008Q4

REPORT INFORMATION
  Report Type: 
  Country: None (occurrence: None)
  Receive Date: 20081119
  Receipt Date: 20081110
  Transmission Date: 20090506
  Serious: Yes (Hospitalization, Other)
  Sender: FDA-Public Use
  Company Number: US-PFIZER INC-2008080053

PATIENT
  Sex: Female
  Weight: 109 kg

DRUGS (1)
  1. CELEBREX [Suspect]
     Indication: ARTHRALGIA
     Route: 048
     Dates: end: 20080212

REACTIONS (2)
  - BLOOD CALCIUM DECREASED [None]
  - CARDIAC DISORDER [None]
